FAERS Safety Report 26000678 (Version 1)
Quarter: 2025Q4

REPORT INFORMATION
  Report Type: Spontaneous
  Country: US (occurrence: US)
  Receive Date: 20251105
  Receipt Date: 20251105
  Transmission Date: 20260117
  Serious: Yes (Other)
  Sender: AMGEN
  Company Number: US-AMGEN-USASP2025217472

PATIENT

DRUGS (2)
  1. PREDNISONE [Suspect]
     Active Substance: PREDNISONE
     Indication: Exposure during pregnancy
     Dosage: UNK
     Route: 064
  2. RITUXIMAB [Suspect]
     Active Substance: RITUXIMAB
     Indication: Exposure during pregnancy
     Dosage: UNK
     Route: 064

REACTIONS (4)
  - Foetal distress syndrome [Unknown]
  - Foetal growth restriction [Unknown]
  - Neonatal disorder [Unknown]
  - Foetal exposure during pregnancy [Unknown]
